FAERS Safety Report 4515610-0 (Version None)
Quarter: 2004Q4

REPORT INFORMATION
  Report Type: 
  Country: None (occurrence: None)
  Receive Date: 20041126
  Receipt Date: 20041116
  Transmission Date: 20050328
  Serious: Yes (Other)
  Sender: FDA-Public Use
  Company Number: 2004096102

PATIENT
  Age: 33 Year
  Sex: Female

DRUGS (2)
  1. DEPO-PROVERA [Suspect]
     Indication: ILL-DEFINED DISORDER
     Dosage: 15 MG (150 MG, SINGLE)
     Dates: start: 20041115, end: 20041115
  2. LEVOTHYROXINE SODIUM [Concomitant]

REACTIONS (11)
  - CHEST DISCOMFORT [None]
  - DIZZINESS [None]
  - EYE SWELLING [None]
  - HEADACHE [None]
  - HOT FLUSH [None]
  - PALATAL OEDEMA [None]
  - PRURITUS [None]
  - PULMONARY CONGESTION [None]
  - SNEEZING [None]
  - SWELLING FACE [None]
  - URTICARIA [None]
